FAERS Safety Report 9222633 (Version 2)
Quarter: 2013Q3

REPORT INFORMATION
  Report Type: Spontaneous
  Country: US (occurrence: None)
  Receive Date: 20120914
  Receipt Date: 20130916
  Transmission Date: 20140515
  Serious: Yes (Other)
  Sender: FDA-Public Use
  Company Number: JPI-P-005838

PATIENT
  Age: 22 Year
  Sex: Female
  Weight: 111.13 kg

DRUGS (3)
  1. XYREM (500 MILLIGRAM/MILLILITERS, SOLUTION) (SODIUM OXYBATE) [Suspect]
     Indication: CATAPLEXY
     Dosage: 4.5 GM (2.25 GM,2 IN 1 D)
     Route: 048
     Dates: start: 20080910
  2. VENLAFAXINE [Suspect]
     Indication: ANXIETY
     Route: 048
     Dates: start: 200908
  3. VENLAFAXINE [Suspect]
     Indication: DEPRESSION
     Route: 048
     Dates: start: 200908

REACTIONS (10)
  - Weight decreased [None]
  - Gingivitis [None]
  - Anxiety [None]
  - Cognitive disorder [None]
  - Drug effect decreased [None]
  - Middle insomnia [None]
  - Decreased appetite [None]
  - Depression [None]
  - Acne cystic [None]
  - Acne [None]
